FAERS Safety Report 24404389 (Version 1)
Quarter: 2024Q4

REPORT INFORMATION
  Report Type: Spontaneous
  Country: CN (occurrence: CN)
  Receive Date: 20241007
  Receipt Date: 20241007
  Transmission Date: 20250115
  Serious: No
  Sender: ROCHE
  Company Number: CN-ROCHE-3517375

PATIENT
  Age: 58 Year
  Sex: Male
  Weight: 56.0 kg

DRUGS (1)
  1. GAZYVA [Suspect]
     Active Substance: OBINUTUZUMAB
     Indication: Nephritis
     Route: 041
     Dates: start: 20240112, end: 20240112

REACTIONS (5)
  - Chest discomfort [Recovered/Resolved]
  - Chills [Recovered/Resolved]
  - Body temperature increased [Recovering/Resolving]
  - Dyspnoea [Recovering/Resolving]
  - Off label use [Unknown]

NARRATIVE: CASE EVENT DATE: 20240112
